FAERS Safety Report 17337402 (Version 2)
Quarter: 2020Q2

REPORT INFORMATION
  Report Type: Report from Study
  Country: US (occurrence: US)
  Receive Date: 20200129
  Receipt Date: 20200417
  Transmission Date: 20200713
  Serious: No
  Sender: FDA-Public Use
  Company Number: NVSC2020US021762

PATIENT
  Age: 68 Year
  Sex: Female

DRUGS (1)
  1. COSENTYX [Suspect]
     Active Substance: SECUKINUMAB
     Indication: PSORIASIS
     Dosage: 300 MG, QW (QW FOR 5 WEEKS THEN Q4W)
     Route: 058
     Dates: start: 20191023

REACTIONS (2)
  - Psoriasis [Unknown]
  - Nail infection [Recovering/Resolving]

NARRATIVE: CASE EVENT DATE: 20200120
